FAERS Safety Report 8974675 (Version 1)
Quarter: 2012Q4

REPORT INFORMATION
  Report Type: Spontaneous
  Country: US (occurrence: None)
  Receive Date: 20121217
  Receipt Date: 20121217
  Transmission Date: 20130627
  Serious: Yes (Other)
  Sender: FDA-Public Use
  Company Number: None

PATIENT
  Age: 66 Year
  Sex: Male
  Weight: 60.33 kg

DRUGS (2)
  1. FLOMAX [Suspect]
     Indication: ENLARGED PROSTATE
     Dosage: 1 CAPLET DAILY po
     Route: 048
     Dates: start: 20120712, end: 20121023
  2. PROSCAR [Suspect]
     Indication: ENLARGED PROSTATE
     Dosage: 1 TABLET DAILY PO
     Route: 048
     Dates: start: 20120712, end: 20121023

REACTIONS (7)
  - Sexual dysfunction [None]
  - Breast swelling [None]
  - Chest pain [None]
  - Dyspnoea [None]
  - Chest discomfort [None]
  - Ejaculation disorder [None]
  - Erectile dysfunction [None]
